FAERS Safety Report 8091575-2 (Version None)
Quarter: 2012Q1

REPORT INFORMATION
  Report Type: 
  Country: None (occurrence: None)
  Receive Date: 20120131
  Receipt Date: 20120127
  Transmission Date: 20120608
  Serious: No
  Sender: FDA-Public Use
  Company Number: US-PFIZER INC-2012023420

PATIENT
  Sex: Female
  Weight: 79.365 kg

DRUGS (12)
  1. IBUPROFEN [Suspect]
     Indication: ARTHRALGIA
     Dosage: UNK
     Dates: end: 20111223
  2. CELEBREX [Suspect]
     Indication: ARTHRALGIA
     Dosage: 200 MG, DAILY
     Route: 048
     Dates: start: 20111223
  3. CELEBREX [Suspect]
     Indication: OEDEMA PERIPHERAL
  4. ACETAMINOPHEN [Suspect]
     Indication: ARTHRALGIA
     Dosage: UNK
     Dates: end: 20111223
  5. IBUPROFEN (ADVIL) [Suspect]
     Indication: ARTHRALGIA
     Dosage: UNK
     Dates: end: 20111223
  6. PREDNISONE TAB [Suspect]
     Indication: ARTHRALGIA
     Dosage: UNK
  7. ETHINYLESTRADIOL/NORGESTIMATE [Concomitant]
     Indication: HORMONE THERAPY
     Dosage: UNK
  8. IBUPROFEN (ADVIL) [Suspect]
     Indication: OEDEMA PERIPHERAL
  9. IBUPROFEN [Suspect]
     Indication: OEDEMA PERIPHERAL
  10. PREDNISONE TAB [Suspect]
     Indication: OEDEMA PERIPHERAL
  11. ACETAMINOPHEN [Suspect]
     Indication: OEDEMA PERIPHERAL
  12. OMEPRAZOLE [Concomitant]
     Indication: GASTROOESOPHAGEAL REFLUX DISEASE
     Dosage: UNK

REACTIONS (3)
  - ACTIVITIES OF DAILY LIVING IMPAIRED [None]
  - DRUG INEFFECTIVE [None]
  - MALAISE [None]
